FAERS Safety Report 4955772-4 (Version None)
Quarter: 2006Q1

REPORT INFORMATION
  Report Type: 
  Country: None (occurrence: None)
  Receive Date: 20060328
  Receipt Date: 20060317
  Transmission Date: 20060701
  Serious: Yes (Hospitalization)
  Sender: FDA-Public Use
  Company Number: GB-SANOFI-SYNTHELABO-A01200602150

PATIENT
  Age: 30 Year
  Sex: Female

DRUGS (6)
  1. DANOL [Suspect]
     Indication: ENDOMETRIOSIS
     Dosage: 400 MG
     Route: 065
     Dates: start: 19870601
  2. DANOL [Interacting]
     Dosage: 400 MG
     Route: 065
  3. ONE-ALPHA [Interacting]
     Indication: HYPOPARATHYROIDISM
     Dosage: 4 MCG
     Route: 065
     Dates: start: 19820101
  4. ONE-ALPHA [Interacting]
     Dosage: 4 MCG
     Route: 065
  5. ONE-ALPHA [Interacting]
     Dosage: 0.75 MCG
     Route: 065
  6. CALCIUM LACTOGLUCONATE [Concomitant]
     Indication: DRUG USE FOR UNKNOWN INDICATION
     Dosage: UNK
     Route: 065

REACTIONS (2)
  - BLOOD CALCIUM INCREASED [None]
  - DRUG INTERACTION [None]
